FAERS Safety Report 18193638 (Version 1)
Quarter: 2020Q3

REPORT INFORMATION
  Report Type: Spontaneous
  Country: FR (occurrence: FR)
  Receive Date: 20200825
  Receipt Date: 20200825
  Transmission Date: 20201103
  Serious: Yes (Hospitalization)
  Sender: FDA-Public Use
  Company Number: FR-PFIZER INC-2020325243

PATIENT
  Age: 23 Year
  Sex: Male
  Weight: 58 kg

DRUGS (2)
  1. FLUCONAZOLE. [Suspect]
     Active Substance: FLUCONAZOLE
     Indication: ORAL CANDIDIASIS
     Dosage: 200 MG
     Route: 048
     Dates: start: 20190621, end: 20190627
  2. BACTRIM [Suspect]
     Active Substance: SULFAMETHOXAZOLE\TRIMETHOPRIM
     Indication: PNEUMOCYSTIS JIROVECII PNEUMONIA
     Dosage: 1200 MG (400/80 MG)
     Route: 042
     Dates: start: 20190617, end: 20190627

REACTIONS (2)
  - Haemolytic anaemia [Recovered/Resolved]
  - Thrombocytopenia [Recovered/Resolved]

NARRATIVE: CASE EVENT DATE: 20190627
